FAERS Safety Report 4445289-8 (Version None)
Quarter: 2004Q3

REPORT INFORMATION
  Report Type: 
  Country: None (occurrence: None)
  Receive Date: 20040907
  Receipt Date: 20040823
  Transmission Date: 20050211
  Serious: Yes (Death, Hospitalization)
  Sender: FDA-Public Use
  Company Number: 04P-087-0271522-00

PATIENT
  Age: 41 Year
  Sex: Female

DRUGS (15)
  1. KALETRA [Suspect]
     Indication: HIV INFECTION
     Dosage: SEE IMAGE
     Route: 048
     Dates: start: 20031029, end: 20031204
  2. ZIDOVUDINE W/LAMIVUDINE [Concomitant]
     Indication: HIV INFECTION
     Dosage: 1 TABLET, 1 IN 1 D, PER ORAL
     Route: 048
     Dates: start: 20040129, end: 20040226
  3. LAMIVUDINE [Concomitant]
  4. STAVUDINE [Concomitant]
  5. CLARITHROMYCIN [Concomitant]
  6. AZITHROMYCIN HYDRATE [Concomitant]
  7. ABACAVIR SULFATE [Suspect]
     Indication: HIV INFECTION
     Dosage: 300 MG, 1 IN 1 D, PER ORAL
     Route: 048
     Dates: start: 20031029, end: 20031204
  8. ABACAVIR SULFATE [Suspect]
     Indication: HIV INFECTION
     Dosage: 300 MG, 1 IN 1 D, PER ORAL
     Route: 048
     Dates: start: 20040113, end: 20040121
  9. ABACAVIR SULFATE [Suspect]
     Indication: HIV INFECTION
     Dosage: 300 MG, 1 IN 1 D, PER ORAL
     Route: 048
     Dates: start: 20040129, end: 20040226
  10. ABACAVIR SULFATE [Suspect]
     Indication: HIV INFECTION
     Dosage: 300 MG, 1 IN 1 D, PER ORAL
     Route: 048
     Dates: start: 20040318, end: 20040323
  11. SPARFLOXACIN [Concomitant]
  12. ETHAMBUTOL HCL [Concomitant]
  13. BACTRIM [Concomitant]
  14. PREDNISOLONE [Concomitant]
  15. ATAZANAVIR SULFATE [Concomitant]

REACTIONS (5)
  - CANDIDIASIS [None]
  - ENCEPHALITIS [None]
  - FUNGUS CSF TEST POSITIVE [None]
  - IMMUNE RECONSTITUTION SYNDROME [None]
  - MENINGITIS FUNGAL [None]
